FAERS Safety Report 9169391 (Version 4)
Quarter: 2013Q4

REPORT INFORMATION
  Report Type: Report from Study
  Country: DE (occurrence: DE)
  Receive Date: 20130318
  Receipt Date: 20131021
  Transmission Date: 20140711
  Serious: Yes (Hospitalization)
  Sender: FDA-Public Use
  Company Number: DE-UCBSA-080266

PATIENT
  Sex: Female

DRUGS (9)
  1. VIMPAT [Suspect]
     Indication: EPILEPSY
     Dosage: DOSE: 50 MG
     Dates: start: 20090519, end: 2009
  2. VIMPAT [Suspect]
     Indication: EPILEPSY
     Dates: start: 200906, end: 2009
  3. VIMPAT [Suspect]
     Indication: EPILEPSY
     Dosage: DOSE: 100 MG - 0- 150 MG
     Dates: start: 2009, end: 201005
  4. VIMPAT [Suspect]
     Indication: EPILEPSY
     Dates: start: 201005
  5. KEPPRA [Suspect]
     Indication: EPILEPSY
     Dosage: 1250 MG -0-1250 MG -0
     Dates: start: 2009
  6. KEPPRA [Suspect]
     Indication: EPILEPSY
     Dosage: DOSE 3000 MG/DAY
     Dates: end: 2009
  7. FOLIC ACID [Concomitant]
     Indication: PROPHYLAXIS
     Dates: start: 20081105
  8. PREGABALIN [Concomitant]
     Indication: EPILEPSY
     Dosage: DOSE 450 MG/DAY
     Dates: end: 2009
  9. MAGNESIUM [Concomitant]
     Indication: PROPHYLAXIS
     Dosage: DOSE - 2-2-2-0
     Dates: start: 2009, end: 2010

REACTIONS (6)
  - Grand mal convulsion [Unknown]
  - Foetal malposition [Unknown]
  - Nausea [Recovered/Resolved]
  - Dizziness [Recovered/Resolved]
  - Postpartum depression [Unknown]
  - Pregnancy [Recovered/Resolved]
